FAERS Safety Report 8788539 (Version 1)
Quarter: 2012Q4

REPORT INFORMATION
  Report Type: 
  Country: US (occurrence: US)
  Receive Date: 20120914
  Receipt Date: 20120914
  Transmission Date: 20130627
  Serious: No
  Sender: FDA-Public Use
  Company Number: US-VERTEX PHARMACEUTICAL INC.-2012-019749

PATIENT
  Age: 57 Year
  Sex: Male
  Weight: 148 kg

DRUGS (10)
  1. INCIVEK [Suspect]
     Indication: HEPATITIS C
     Dosage: 750 mg, tid
     Route: 048
     Dates: start: 20120727
  2. PEGASYS [Concomitant]
     Indication: HEPATITIS C
     Dosage: 180 ?g, UNK
     Route: 058
     Dates: start: 20120727
  3. RIBAVIRIN [Concomitant]
     Indication: HEPATITIS C
     Dosage: 600 mg, bid
     Route: 048
     Dates: start: 20120727
  4. METFORMIN [Concomitant]
     Indication: DIABETES MELLITUS
     Dosage: 100 mg, bid
     Route: 048
  5. PRO AIR INHALER [Concomitant]
  6. CLONAZEPAM [Concomitant]
     Indication: ANXIETY
     Dosage: 0.5 mg, prn
     Route: 048
  7. HYDROCODONE/APAP [Concomitant]
     Indication: PAIN
     Dosage: UNK, prn
     Route: 048
  8. IBUPROFEN [Concomitant]
     Indication: ARTHRALGIA
     Dosage: UNK, prn
     Route: 048
  9. LYRICA [Concomitant]
     Route: 048
  10. GLYBURIDE [Concomitant]
     Indication: DIABETES MELLITUS
     Dosage: 5 mg, qd
     Route: 048

REACTIONS (1)
  - Headache [Not Recovered/Not Resolved]
